FAERS Safety Report 19474178 (Version 1)
Quarter: 2021Q2

REPORT INFORMATION
  Report Type: Spontaneous
  Country: FR (occurrence: FR)
  Receive Date: 20210630
  Receipt Date: 20210630
  Transmission Date: 20210717
  Serious: Yes (Death, Hospitalization, Other)
  Sender: FDA-Public Use
  Company Number: FR-AMGEN-FRASP2021097353

PATIENT
  Age: 60 Year
  Sex: Female

DRUGS (5)
  1. PREDNISOLONE. [Concomitant]
     Active Substance: PREDNISOLONE
     Dosage: 1MG/KG, QD
  2. DOXORUBICIN [Concomitant]
     Active Substance: DOXORUBICIN
  3. FULVESTRANT. [Concomitant]
     Active Substance: FULVESTRANT
     Indication: PROPHYLAXIS
  4. XGEVA [Suspect]
     Active Substance: DENOSUMAB
     Indication: METASTASES TO BONE
     Dosage: UNK
     Route: 065
  5. CAPECITABINE. [Concomitant]
     Active Substance: CAPECITABINE
     Indication: BREAST CANCER

REACTIONS (4)
  - Death [Fatal]
  - Thrombotic microangiopathy [Unknown]
  - Paraneoplastic syndrome [Unknown]
  - Haemolytic uraemic syndrome [Unknown]

NARRATIVE: CASE EVENT DATE: 201810
